APPROVED DRUG PRODUCT: ACETAMINOPHEN
Active Ingredient: ACETAMINOPHEN
Strength: 1GM/100ML (10MG/ML)
Dosage Form/Route: SOLUTION;INTRAVENOUS
Application: A219096 | Product #001 | TE Code: AP1
Applicant: CAPLIN STERILES LTD
Approved: Dec 5, 2025 | RLD: No | RS: No | Type: RX